FAERS Safety Report 9237173 (Version 1)
Quarter: 2013Q2

REPORT INFORMATION
  Report Type: Spontaneous
  Country: US (occurrence: US)
  Receive Date: 20130417
  Receipt Date: 20130417
  Transmission Date: 20140414
  Serious: No
  Sender: FDA-Public Use
  Company Number: US-PFIZER INC-2004078722

PATIENT
  Age: 36 Year
  Sex: Male

DRUGS (2)
  1. MOTRIN [Suspect]
     Indication: POSTOPERATIVE ANALGESIA
     Dosage: 600 MG, Q6-8HRS (EVERY 6-8HRS)
     Dates: start: 20041007
  2. OXYCOCET [Concomitant]
     Dosage: UNK, Q6HR (EVERY 6HR)

REACTIONS (3)
  - Prescribed overdose [Unknown]
  - Tinnitus [Not Recovered/Not Resolved]
  - Condition aggravated [Not Recovered/Not Resolved]
